FAERS Safety Report 7883977-1 (Version None)
Quarter: 2011Q4

REPORT INFORMATION
  Report Type: 
  Country: None (occurrence: None)
  Receive Date: 20111102
  Receipt Date: 20111026
  Transmission Date: 20120403
  Serious: Yes (Hospitalization, Disabling)
  Sender: FDA-Public Use
  Company Number: PHHY2011US44854

PATIENT
  Sex: Female

DRUGS (3)
  1. STEROIDS NOS [Concomitant]
     Dosage: UNK UKN, UNK
  2. GILENYA [Suspect]
     Indication: RELAPSING-REMITTING MULTIPLE SCLEROSIS
     Dosage: 0.5 MG, QD
     Route: 048
     Dates: start: 20110509
  3. NEURONTIN [Concomitant]
     Dosage: UNK UKN, UNK

REACTIONS (6)
  - PNEUMONIA [None]
  - PRURITUS [None]
  - INFECTION [None]
  - HEADACHE [None]
  - NAUSEA [None]
  - BURNING SENSATION [None]
